FAERS Safety Report 4645904-X (Version None)
Quarter: 2005Q2

REPORT INFORMATION
  Report Type: 
  Country: None (occurrence: None)
  Receive Date: 20050427
  Receipt Date: 20050420
  Transmission Date: 20051028
  Serious: Yes (Other)
  Sender: FDA-Public Use
  Company Number: DE-BRISTOL-MYERS SQUIBB COMPANY-12943742

PATIENT
  Age: 57 Year
  Sex: Female
  Weight: 82 kg

DRUGS (2)
  1. CARBOPLATIN [Suspect]
     Indication: BRONCHIAL CARCINOMA
     Route: 042
     Dates: start: 20050302, end: 20050302
  2. PACLITAXEL [Suspect]
     Indication: BRONCHIAL CARCINOMA
     Route: 042
     Dates: start: 20050302, end: 20050302

REACTIONS (6)
  - FEELING HOT [None]
  - HYPERVENTILATION [None]
  - LEUKOPENIA [None]
  - NEUTROPENIA [None]
  - PAIN [None]
  - SENSATION OF PRESSURE [None]
